FAERS Safety Report 11177376 (Version 1)
Quarter: 2015Q2

REPORT INFORMATION
  Report Type: Spontaneous
  Country: US (occurrence: None)
  Receive Date: 20150515
  Receipt Date: 20150515
  Transmission Date: 20150821
  Serious: Yes (Hospitalization, Other)
  Sender: FDA-Public Use
  Company Number: 2014004806

PATIENT
  Sex: Female

DRUGS (2)
  1. MIRENA (LEVONORGESTREL) [Concomitant]
  2. CIMZIA [Suspect]
     Active Substance: CERTOLIZUMAB PEGOL

REACTIONS (4)
  - Uterine infection [None]
  - Haemorrhage [None]
  - Abdominal mass [None]
  - Uterine mass [None]
